FAERS Safety Report 15058666 (Version 1)
Quarter: 2018Q2

REPORT INFORMATION
  Report Type: Spontaneous
  Country: US (occurrence: US)
  Receive Date: 20180625
  Receipt Date: 20180625
  Transmission Date: 20180711
  Serious: No
  Sender: FDA-Public Use
  Company Number: US-TEVA-2018-US-911715

PATIENT
  Age: 68 Year
  Sex: Female

DRUGS (1)
  1. CLONAZEPAM. [Suspect]
     Active Substance: CLONAZEPAM
     Indication: PANIC DISORDER
     Dosage: AS NEEDED
     Dates: start: 2013, end: 201804

REACTIONS (5)
  - Off label use [Unknown]
  - Panic attack [Unknown]
  - Headache [Recovering/Resolving]
  - Drug ineffective [Unknown]
  - Feeling jittery [Unknown]

NARRATIVE: CASE EVENT DATE: 201804
